FAERS Safety Report 5409224-8 (Version None)
Quarter: 2007Q3

REPORT INFORMATION
  Report Type: 
  Country: None (occurrence: None)
  Receive Date: 20070807
  Receipt Date: 20070807
  Transmission Date: 20080115
  Serious: Yes (Hospitalization)
  Sender: FDA-Public Use
  Company Number: None

PATIENT
  Age: 62 Year
  Sex: Female

DRUGS (1)
  1. CETUXIMAB [Suspect]
     Indication: NON-SMALL CELL LUNG CANCER
     Dosage: 250MG/M2 = 425 MG WEEKLY IV
     Route: 042
     Dates: start: 20070725

REACTIONS (3)
  - BLOOD PRESSURE ORTHOSTATIC DECREASED [None]
  - DEHYDRATION [None]
  - HYPOTENSION [None]
